FAERS Safety Report 11248675 (Version 2)
Quarter: 2015Q3

REPORT INFORMATION
  Report Type: Spontaneous
  Country: US (occurrence: US)
  Receive Date: 20150708
  Receipt Date: 20150831
  Transmission Date: 20151125
  Serious: No
  Sender: FDA-Public Use
  Company Number: US-ELI_LILLY_AND_COMPANY-US201003002683

PATIENT
  Age: 64 Year
  Sex: Female

DRUGS (5)
  1. CYMBALTA [Suspect]
     Active Substance: DULOXETINE HYDROCHLORIDE
     Dosage: 60 MG, UNK
     Route: 048
  2. CYCLOBENZAPRINE [Concomitant]
     Active Substance: CYCLOBENZAPRINE
  3. CYMBALTA [Suspect]
     Active Substance: DULOXETINE HYDROCHLORIDE
     Indication: DEPRESSION
     Dosage: 90 MG, UNK
     Route: 048
     Dates: start: 200806
  4. PROZAC [Suspect]
     Active Substance: FLUOXETINE HYDROCHLORIDE
     Indication: POSTMENOPAUSE
     Dates: start: 1996, end: 1996
  5. RESTORIL [Concomitant]
     Active Substance: TEMAZEPAM

REACTIONS (7)
  - Scoliosis [Unknown]
  - Staring [Recovered/Resolved]
  - Apathy [Recovered/Resolved]
  - Off label use [Recovered/Resolved]
  - Radiculopathy [Unknown]
  - Hearing impaired [Unknown]
  - Feeling of relaxation [Recovered/Resolved]

NARRATIVE: CASE EVENT DATE: 1996
